FAERS Safety Report 6755741-8 (Version None)
Quarter: 2010Q2

REPORT INFORMATION
  Report Type: 
  Country: None (occurrence: None)
  Receive Date: 20100604
  Receipt Date: 20100601
  Transmission Date: 20101027
  Serious: Yes (Hospitalization)
  Sender: FDA-Public Use
  Company Number: JP-SANOFI-AVENTIS-2009SA002158

PATIENT
  Age: 55 Year
  Sex: Male

DRUGS (5)
  1. ARAVA [Suspect]
     Indication: RHEUMATOID ARTHRITIS
     Route: 048
     Dates: start: 20091031, end: 20091113
  2. QUESTRAN [Suspect]
     Indication: DRUG DETOXIFICATION
     Route: 048
     Dates: start: 20091119, end: 20091125
  3. LOXOPROFEN SODIUM [Concomitant]
     Indication: RHEUMATOID ARTHRITIS
     Route: 048
  4. TEPRENONE [Concomitant]
     Indication: RHEUMATOID ARTHRITIS
     Route: 048
  5. PREDNISOLONE [Concomitant]
     Indication: RHEUMATOID ARTHRITIS
     Route: 048

REACTIONS (8)
  - ANAPHYLACTIC REACTION [None]
  - ASPARTATE AMINOTRANSFERASE INCREASED [None]
  - DELIRIUM [None]
  - DISORIENTATION [None]
  - DRUG ERUPTION [None]
  - HALLUCINATION [None]
  - HALLUCINATION, AUDITORY [None]
  - PRURITUS [None]
